FAERS Safety Report 7437827-8 (Version None)
Quarter: 2011Q2

REPORT INFORMATION
  Report Type: 
  Country: None (occurrence: None)
  Receive Date: 20110426
  Receipt Date: 20110419
  Transmission Date: 20111010
  Serious: Yes (Hospitalization)
  Sender: FDA-Public Use
  Company Number: A0806201A

PATIENT
  Age: 73 Year
  Sex: Male

DRUGS (10)
  1. ATENOLOL [Concomitant]
  2. VERAPAMIL [Concomitant]
  3. PAXIL [Concomitant]
  4. ZESTRIL [Concomitant]
  5. GLUCOPHAGE [Concomitant]
  6. AVANDIA [Suspect]
     Indication: DIABETES MELLITUS
     Dosage: 8MG PER DAY
     Route: 048
     Dates: start: 19991102
  7. NEURONTIN [Concomitant]
  8. ALPRAZOLAM [Concomitant]
  9. ASPIRIN [Concomitant]
  10. GLYBURIDE [Concomitant]

REACTIONS (3)
  - MYOCARDIAL INFARCTION [None]
  - SICK SINUS SYNDROME [None]
  - ATRIAL FIBRILLATION [None]
